FAERS Safety Report 8423825-4 (Version None)
Quarter: 2012Q2

REPORT INFORMATION
  Report Type: 
  Country: None (occurrence: None)
  Receive Date: 20120608
  Receipt Date: 20110303
  Transmission Date: 20120825
  Serious: No
  Sender: FDA-Public Use
  Company Number: US-ASTRAZENECA-2011SE12173

PATIENT

DRUGS (4)
  1. PRAVASTATIN SODIUM [Concomitant]
  2. ATACAND [Suspect]
     Route: 048
  3. LUMIGAN [Concomitant]
     Route: 031
  4. FLUOROMETHOLONE [Concomitant]

REACTIONS (2)
  - MALAISE [None]
  - DRUG DOSE OMISSION [None]
